FAERS Safety Report 4756065-0 (Version None)
Quarter: 2005Q3

REPORT INFORMATION
  Report Type: 
  Country: None (occurrence: None)
  Receive Date: 20050830
  Receipt Date: 20050817
  Transmission Date: 20060218
  Serious: Yes (Hospitalization, Other)
  Sender: FDA-Public Use
  Company Number: PHHO2005MX13200

PATIENT
  Age: 61 Year
  Sex: Male

DRUGS (3)
  1. GLIBENCLAMIDE [Concomitant]
     Indication: DIABETES MELLITUS
  2. DIOVAN HCT [Suspect]
     Indication: HYPERTENSION
     Dosage: 80/12.5 MG/QD
     Route: 048
     Dates: start: 20050519, end: 20050805
  3. METFORMIN [Concomitant]
     Indication: DIABETES MELLITUS

REACTIONS (2)
  - CHEST PAIN [None]
  - VOMITING [None]
